FAERS Safety Report 20967613 (Version 1)
Quarter: 2022Q2

REPORT INFORMATION
  Report Type: Spontaneous
  Country: CH (occurrence: CH)
  Receive Date: 20220616
  Receipt Date: 20220616
  Transmission Date: 20220720
  Serious: Yes (Hospitalization, Other)
  Sender: FDA-Public Use
  Company Number: None

PATIENT
  Age: 92 Year
  Sex: Male

DRUGS (20)
  1. PIPERACILLIN SODIUM\TAZOBACTAM SODIUM [Suspect]
     Active Substance: PIPERACILLIN SODIUM\TAZOBACTAM SODIUM
     Dosage: 4.5 G, 3X/DAY, EVERY 8 H
     Dates: start: 20220513, end: 20220516
  2. HALCION [Suspect]
     Active Substance: TRIAZOLAM
     Dosage: UNK
     Dates: end: 20220511
  3. HALCION [Suspect]
     Active Substance: TRIAZOLAM
     Dosage: IN TOTAL
     Route: 048
     Dates: start: 20220513, end: 20220513
  4. PREDNISONE [Suspect]
     Active Substance: PREDNISONE
     Dosage: 7.5 MG, DAILY
     Dates: end: 20220512
  5. PREDNISONE [Suspect]
     Active Substance: PREDNISONE
     Dosage: 20 MG, DAILY
     Dates: start: 20220513
  6. ZALDIAR [Concomitant]
     Active Substance: ACETAMINOPHEN\TRAMADOL HYDROCHLORIDE
     Dates: start: 20220511, end: 20220514
  7. ENOXAPARIN SODIUM [Concomitant]
     Active Substance: ENOXAPARIN SODIUM
     Dosage: UNK
     Dates: start: 20220511, end: 20220513
  8. ENOXAPARIN SODIUM [Concomitant]
     Active Substance: ENOXAPARIN SODIUM
     Dosage: UNK
     Dates: start: 20220515
  9. FOLIC ACID [Concomitant]
     Active Substance: FOLIC ACID
     Dosage: UNK
  10. ALLOPURINOL [Concomitant]
     Active Substance: ALLOPURINOL
     Dosage: UNK
  11. ESOMEPRAZOLE [Concomitant]
     Active Substance: ESOMEPRAZOLE
     Dosage: UNK
  12. FOSFOMYCIN TROMETHAMINE [Concomitant]
     Active Substance: FOSFOMYCIN TROMETHAMINE
     Dosage: UNK
  13. METOPROLOL SUCCINATE [Concomitant]
     Active Substance: METOPROLOL SUCCINATE
     Dosage: UNK
  14. TORSEMIDE [Concomitant]
     Active Substance: TORSEMIDE
     Dosage: UNK
  15. MOVICOL [Concomitant]
     Active Substance: POLYETHYLENE GLYCOL 3350\POTASSIUM CHLORIDE\SODIUM BICARBONATE\SODIUM CHLORIDE
     Dates: start: 20220513
  16. ACETAMINOPHEN [Concomitant]
     Active Substance: ACETAMINOPHEN
  17. RIVOTRIL [Concomitant]
     Active Substance: CLONAZEPAM
     Dates: start: 20220515, end: 20220515
  18. LASIX [Concomitant]
     Active Substance: FUROSEMIDE
     Dates: start: 20220511, end: 20220513
  19. PASPERTIN [Concomitant]
     Dates: start: 20220512, end: 20220512
  20. MEBEVERINE [Concomitant]
     Active Substance: MEBEVERINE
     Dates: start: 20220511, end: 20220518

REACTIONS (2)
  - Tonic convulsion [Recovered/Resolved]
  - Confusional state [Not Recovered/Not Resolved]

NARRATIVE: CASE EVENT DATE: 20220514
